FAERS Safety Report 8418599-7 (Version None)
Quarter: 2012Q2

REPORT INFORMATION
  Report Type: 
  Country: None (occurrence: None)
  Receive Date: 20120607
  Receipt Date: 20120530
  Transmission Date: 20120825
  Serious: Yes (Life-Threatening, Hospitalization, Other)
  Sender: FDA-Public Use
  Company Number: JP-BRISTOL-MYERS SQUIBB COMPANY-15892060

PATIENT
  Age: 57 Year
  Sex: Female
  Weight: 40 kg

DRUGS (10)
  1. TACROLIMUS [Concomitant]
  2. ACETAMINOPHEN [Concomitant]
     Indication: RHEUMATOID ARTHRITIS
  3. ACTEMRA [Concomitant]
     Dosage: GENETICAL RECOMBINATION
  4. METHOTREXATE [Suspect]
  5. CYTOTEC [Concomitant]
     Indication: GASTRITIS PROPHYLAXIS
  6. ORENCIA [Suspect]
     Dosage: 19JAN11,02FEB,02MAR,06APR11,5TH INFUSION
     Route: 041
     Dates: start: 20110105, end: 20110406
  7. ACTONEL [Concomitant]
     Indication: OSTEOPOROSIS
  8. TALION [Concomitant]
     Indication: RHINITIS ALLERGIC
  9. PREDNISOLONE [Concomitant]
     Indication: RHEUMATOID ARTHRITIS
     Route: 048
  10. NABOAL [Concomitant]
     Indication: RHEUMATOID ARTHRITIS

REACTIONS (2)
  - ARRHYTHMIA [None]
  - CORONARY ARTERY STENOSIS [None]
